FAERS Safety Report 5352592-6 (Version None)
Quarter: 2007Q2

REPORT INFORMATION
  Report Type: 
  Country: None (occurrence: None)
  Receive Date: 20070611
  Receipt Date: 20070531
  Transmission Date: 20071010
  Serious: Yes (Other)
  Sender: FDA-Public Use
  Company Number: JP-ROCHE-493176

PATIENT
  Age: 5 Year
  Sex: Male
  Weight: 18 kg

DRUGS (7)
  1. TAMIFLU [Suspect]
     Indication: INFLUENZA
     Dosage: FORM:DRY SYRUP
     Route: 048
     Dates: start: 20070406, end: 20070406
  2. MEIACT [Concomitant]
     Dosage: FORM REPORTED:GRANULES
     Route: 048
     Dates: start: 20070405, end: 20070408
  3. MUCODYNE [Concomitant]
     Dosage: DOSE FORM REPORTED AS GRANULES.
     Route: 048
     Dates: start: 20070405, end: 20070408
  4. POLARAMINE [Concomitant]
     Route: 048
     Dates: start: 20070405, end: 20070408
  5. RIKAVARIN [Concomitant]
     Dosage: FORM:FINE GRANULES
     Route: 048
     Dates: start: 20070405, end: 20070408
  6. KETOTIFEN [Concomitant]
     Dosage: DRUG NAME REPORTED AS SUPDOL.DOSE FORM:DRY SYRUP
     Route: 048
     Dates: start: 20070405, end: 20070408
  7. PONTAL [Concomitant]
     Route: 048
     Dates: start: 20070405, end: 20070406

REACTIONS (2)
  - ABNORMAL BEHAVIOUR [None]
  - EUPHORIC MOOD [None]
